FAERS Safety Report 9115647 (Version 1)
Quarter: 2013Q1

REPORT INFORMATION
  Report Type: Spontaneous
  Country: US (occurrence: US)
  Receive Date: 20130225
  Receipt Date: 20130225
  Transmission Date: 20140127
  Serious: No
  Sender: FDA-Public Use
  Company Number: US-BRISTOL-MYERS SQUIBB COMPANY-16775264

PATIENT
  Age: 77 Year
  Sex: Male
  Weight: 99.77 kg

DRUGS (1)
  1. TRIAMCINOLONE ACE INJ [Suspect]
     Indication: ARTHRALGIA

REACTIONS (5)
  - Hyperglycaemia [Unknown]
  - Fatigue [Unknown]
  - Memory impairment [Unknown]
  - Eye disorder [Unknown]
  - Gait disturbance [Unknown]
